FAERS Safety Report 14090573 (Version 1)
Quarter: 2017Q4

REPORT INFORMATION
  Report Type: Spontaneous
  Country: US (occurrence: US)
  Receive Date: 20171015
  Receipt Date: 20171015
  Transmission Date: 20180321
  Serious: Yes (Hospitalization)
  Sender: FDA-Public Use
  Company Number: US-ALLERGAN-1757394US

PATIENT
  Sex: Female

DRUGS (1)
  1. DALVANCE [Suspect]
     Active Substance: DALBAVANCIN
     Indication: CELLULITIS
     Dosage: 1500 MG, SINGLE
     Route: 042
     Dates: start: 20171003, end: 20171004

REACTIONS (6)
  - Nausea [Unknown]
  - Dyspnoea [Unknown]
  - Dizziness [Unknown]
  - Lip swelling [Unknown]
  - Oropharyngeal pain [Unknown]
  - Pharyngeal oedema [Unknown]

NARRATIVE: CASE EVENT DATE: 20171004
